FAERS Safety Report 4921251-3 (Version None)
Quarter: 2006Q1

REPORT INFORMATION
  Report Type: 
  Country: None (occurrence: None)
  Receive Date: 20060224
  Receipt Date: 20060217
  Transmission Date: 20060701
  Serious: Yes (Hospitalization, Other)
  Sender: FDA-Public Use
  Company Number: GB-BOEHRINGER INGELHEIM PHARMACEUTICALS, INC.-2006-UK-00597UK

PATIENT
  Age: 67 Year
  Sex: Female

DRUGS (4)
  1. SPIRIVA [Suspect]
     Route: 055
     Dates: start: 20051222, end: 20060108
  2. ATROVENT [Concomitant]
     Dosage: TT TDS
     Route: 055
  3. BECLOMETHASONE DIPROPIONATE [Concomitant]
     Route: 055
  4. AMOXICILLIN [Concomitant]
     Route: 048

REACTIONS (8)
  - BLISTER [None]
  - CHEST DISCOMFORT [None]
  - DYSPNOEA [None]
  - JOINT SWELLING [None]
  - OEDEMA PERIPHERAL [None]
  - PAIN IN EXTREMITY [None]
  - PERIPHERAL COLDNESS [None]
  - SWELLING FACE [None]
